FAERS Safety Report 25833537 (Version 2)
Quarter: 2025Q4

REPORT INFORMATION
  Report Type: Spontaneous
  Country: CO (occurrence: CO)
  Receive Date: 20250922
  Receipt Date: 20251114
  Transmission Date: 20260117
  Serious: Yes (Death, Hospitalization, Other)
  Sender: NOVO NORDISK
  Company Number: CO-NOVOPROD-1521298

PATIENT
  Age: 60 Year
  Sex: Male

DRUGS (2)
  1. SEMAGLUTIDE [Suspect]
     Active Substance: SEMAGLUTIDE
     Indication: Product used for unknown indication
     Dosage: UNK
  2. GLUCOPHAGE [Concomitant]
     Active Substance: METFORMIN HYDROCHLORIDE
     Dosage: 500 MG, QD

REACTIONS (1)
  - Pancreatic carcinoma [Fatal]
